FAERS Safety Report 8906196 (Version 1)
Quarter: 2012Q4

REPORT INFORMATION
  Report Type: Spontaneous
  Country: US (occurrence: None)
  Receive Date: 20121112
  Receipt Date: 20121112
  Transmission Date: 20130627
  Serious: Yes (Other)
  Sender: FDA-Public Use
  Company Number: None

PATIENT
  Age: 54 Year
  Sex: Female
  Weight: 93.44 kg

DRUGS (4)
  1. ATORVASTATIN [Suspect]
     Dosage: 20 MG QHS PO
     Route: 048
  2. ATENOLOL [Concomitant]
  3. WELLBUTRIN [Concomitant]
  4. METFORMIN [Concomitant]

REACTIONS (6)
  - Product substitution issue [None]
  - Myalgia [None]
  - Muscle spasms [None]
  - Chest pain [None]
  - Mood altered [None]
  - Confusional state [None]
